FAERS Safety Report 11149254 (Version 3)
Quarter: 2015Q3

REPORT INFORMATION
  Report Type: Spontaneous
  Country: US (occurrence: US)
  Receive Date: 20150529
  Receipt Date: 20150722
  Transmission Date: 20151125
  Serious: No
  Sender: FDA-Public Use
  Company Number: US-GLAXOSMITHKLINE-US2015GSK073532

PATIENT
  Sex: Female

DRUGS (3)
  1. VOTRIENT [Suspect]
     Active Substance: PAZOPANIB HYDROCHLORIDE
     Indication: NEOPLASM MALIGNANT
     Dosage: 800 MG, QD
     Route: 065
     Dates: start: 20150520
  2. VOTRIENT [Suspect]
     Active Substance: PAZOPANIB HYDROCHLORIDE
     Indication: MALIGNANT CONNECTIVE TISSUE NEOPLASM
  3. VOTRIENT [Suspect]
     Active Substance: PAZOPANIB HYDROCHLORIDE
     Indication: SOFT TISSUE NEOPLASM

REACTIONS (10)
  - Nausea [Unknown]
  - Dysgeusia [Unknown]
  - Oral discomfort [Unknown]
  - Fatigue [Unknown]
  - Tenderness [Not Recovered/Not Resolved]
  - Blood pressure increased [Unknown]
  - Thyroid disorder [Unknown]
  - Stomatitis [Unknown]
  - Multiple allergies [Unknown]
  - Eye swelling [Unknown]
